FAERS Safety Report 12296118 (Version 2)
Quarter: 2016Q2

REPORT INFORMATION
  Report Type: Spontaneous
  Country: US (occurrence: US)
  Receive Date: 20160422
  Receipt Date: 20160427
  Transmission Date: 20160815
  Serious: Yes (Hospitalization, Other)
  Sender: FDA-Public Use
  Company Number: US-MDT-ADR-2016-00730

PATIENT
  Age: 53 Year
  Sex: Male

DRUGS (4)
  1. NITRO BID PATCH [Suspect]
     Active Substance: NITROGLYCERIN
     Route: 048
  2. BACLOFEN. [Suspect]
     Active Substance: BACLOFEN
     Dosage: 549.3 MCG/DAY
     Route: 037
  3. ATIVAN [Suspect]
     Active Substance: LORAZEPAM
     Dosage: 2 MG
  4. CLONIDINE. [Suspect]
     Active Substance: CLONIDINE

REACTIONS (7)
  - Abdominal discomfort [Unknown]
  - Device power source issue [None]
  - Hypertension [Recovered/Resolved]
  - No therapeutic response [Unknown]
  - Sudden onset of sleep [Recovered/Resolved]
  - Disease recurrence [None]
  - Muscle spasticity [Recovered/Resolved]

NARRATIVE: CASE EVENT DATE: 2015
